FAERS Safety Report 18189191 (Version 1)
Quarter: 2020Q3

REPORT INFORMATION
  Report Type: Spontaneous
  Country: US (occurrence: US)
  Receive Date: 20200824
  Receipt Date: 20200824
  Transmission Date: 20201103
  Serious: No
  Sender: FDA-Public Use
  Company Number: US-PERRIGO-19US010005

PATIENT
  Age: 38 Year
  Sex: Female
  Weight: 61.22 kg

DRUGS (4)
  1. NICOTINE POLACRILEX [Suspect]
     Active Substance: NICOTINE
     Indication: SMOKING CESSATION THERAPY
     Dosage: 2 MG, 6 TO 8 TIMES DAILY
     Route: 002
     Dates: start: 2015, end: 20190809
  2. NICOTINE POLACRILEX [Suspect]
     Active Substance: NICOTINE
     Dosage: PIECES OFF 1 LOZENGE, 4 TIMES
     Route: 002
     Dates: start: 20190813, end: 20190813
  3. NICOTINE POLACRILEX [Suspect]
     Active Substance: NICOTINE
     Dosage: 2 MG, 6 TO 8 TIMES DAILY
     Route: 002
     Dates: start: 20190810, end: 20190812
  4. NICOTINE POLACRILEX [Suspect]
     Active Substance: NICOTINE
     Dosage: 2 MG, 6 TO 8 TIMES DAILY
     Route: 002
     Dates: start: 20190814

REACTIONS (6)
  - Glossodynia [Recovering/Resolving]
  - Tongue discomfort [Recovered/Resolved]
  - Hypoaesthesia oral [Recovered/Resolved]
  - Underdose [Recovered/Resolved]
  - Burn oral cavity [Recovering/Resolving]
  - Wrong technique in product usage process [Recovered/Resolved]

NARRATIVE: CASE EVENT DATE: 20190812
